FAERS Safety Report 6780988-4 (Version None)
Quarter: 2010Q2

REPORT INFORMATION
  Report Type: 
  Country: None (occurrence: None)
  Receive Date: 20100621
  Receipt Date: 20100610
  Transmission Date: 20101027
  Serious: Yes (Death, Hospitalization)
  Sender: FDA-Public Use
  Company Number: CA-JNJFOC-20100508480

PATIENT
  Sex: Female
  Weight: 59 kg

DRUGS (1)
  1. REMICADE [Suspect]
     Indication: CROHN'S DISEASE
     Route: 042

REACTIONS (4)
  - DEATH [None]
  - FEELING ABNORMAL [None]
  - PNEUMONIA [None]
  - PULMONARY THROMBOSIS [None]
